FAERS Safety Report 7647717-3 (Version None)
Quarter: 2011Q3

REPORT INFORMATION
  Report Type: 
  Country: None (occurrence: None)
  Receive Date: 20110801
  Receipt Date: 20110801
  Transmission Date: 20111222
  Serious: Yes (Hospitalization, Disabling)
  Sender: FDA-Public Use
  Company Number: None

PATIENT
  Age: 43 Year
  Sex: Female
  Weight: 86.182 kg

DRUGS (1)
  1. BEYAZ [Suspect]
     Indication: ENDOMETRIOSIS

REACTIONS (1)
  - DEEP VEIN THROMBOSIS [None]
